FAERS Safety Report 9849961 (Version 1)
Quarter: 2013Q4

REPORT INFORMATION
  Report Type: Spontaneous
  Country: US (occurrence: None)
  Receive Date: 20131226
  Receipt Date: 20131226
  Transmission Date: 20140711
  Serious: Yes (Hospitalization)
  Sender: FDA-Public Use
  Company Number: PHEH2012US013744

PATIENT
  Age: 42 Year
  Sex: Female

DRUGS (9)
  1. AFINITOR [Suspect]
     Indication: TUBEROUS SCLEROSIS
     Route: 048
     Dates: start: 20120621
  2. AFINITOR [Suspect]
     Indication: ANGIOMYOLIPOMA
     Route: 048
     Dates: start: 20120621
  3. TOPAMAX (TOPIRAMATE) [Concomitant]
  4. VITAMINS NOS (VITAMINS NOS) [Concomitant]
  5. DOCUSATE SODIUM (DOCUSATE SODIUM) [Concomitant]
  6. CITALOPRAM (CITALOPRAM) [Concomitant]
  7. SEROQUEL XR (QUETIAPINE FUMARATE) [Concomitant]
  8. NUEDEXTA (DEXTROMETHORPHAN HYDROBROMIDE, QUINIDINE SULFATE) [Concomitant]
  9. FISH OIL (FISH OIL) [Concomitant]

REACTIONS (4)
  - Constipation [None]
  - Mood swings [None]
  - Blood cholesterol increased [None]
  - Acne [None]
